FAERS Safety Report 16848743 (Version 1)
Quarter: 2019Q3

REPORT INFORMATION
  Report Type: Spontaneous
  Country: RO (occurrence: RO)
  Receive Date: 20190925
  Receipt Date: 20190925
  Transmission Date: 20191005
  Serious: Yes (Other)
  Sender: FDA-Public Use
  Company Number: RO-ROCHE-2411901

PATIENT
  Age: 45 Year
  Sex: Female

DRUGS (4)
  1. KADCYLA [Suspect]
     Active Substance: ADO-TRASTUZUMAB EMTANSINE
     Indication: BREAST CANCER METASTATIC
     Dosage: YES
     Route: 042
     Dates: start: 20180101
  2. ANASTROZOLE. [Concomitant]
     Active Substance: ANASTROZOLE
     Indication: BREAST CANCER
     Dosage: NO
     Route: 065
     Dates: start: 20170828, end: 2018
  3. HERCEPTIN [Suspect]
     Active Substance: TRASTUZUMAB
     Indication: BREAST CANCER
     Dosage: NO
     Route: 058
     Dates: start: 20170221, end: 2018
  4. ZOLEDRONIC ACID. [Concomitant]
     Active Substance: ZOLEDRONIC ACID
     Indication: BREAST CANCER METASTATIC
     Dosage: YES
     Route: 042
     Dates: start: 20180101

REACTIONS (3)
  - Hepatocellular injury [Unknown]
  - Ejection fraction decreased [Unknown]
  - Thrombocytopenia [Unknown]
